FAERS Safety Report 11380582 (Version 1)
Quarter: 2015Q3

REPORT INFORMATION
  Report Type: Spontaneous
  Country: US (occurrence: US)
  Receive Date: 20150814
  Receipt Date: 20150814
  Transmission Date: 20151125
  Serious: No
  Sender: FDA-Public Use
  Company Number: US-JNJFOC-20150512684

PATIENT
  Sex: Male
  Weight: 90.72 kg

DRUGS (3)
  1. SODIUM BICARBONATE. [Concomitant]
     Active Substance: SODIUM BICARBONATE
     Route: 065
  2. PANCREAZE [Suspect]
     Active Substance: PANCRELIPASE
     Indication: PANCREATIC DUCT OBSTRUCTION
     Dosage: 5 PILLS PER MEAL
     Route: 048
  3. PANCREAZE [Suspect]
     Active Substance: PANCRELIPASE
     Indication: PANCREATIC DUCT OBSTRUCTION
     Route: 048

REACTIONS (1)
  - Visual acuity reduced [Not Recovered/Not Resolved]
